FAERS Safety Report 25991427 (Version 1)
Quarter: 2025Q4

REPORT INFORMATION
  Report Type: Spontaneous
  Country: US (occurrence: US)
  Receive Date: 20251103
  Receipt Date: 20251103
  Transmission Date: 20260118
  Serious: No
  Sender: SANOFI AVENTIS
  Company Number: US-SA-2025SA319585

PATIENT
  Age: 60 Year
  Sex: Female
  Weight: 75 kg

DRUGS (8)
  1. DUPIXENT [Suspect]
     Active Substance: DUPILUMAB
     Indication: Neurodermatitis
     Dosage: 300 MG, QOW
     Route: 058
  2. DUPIXENT [Suspect]
     Active Substance: DUPILUMAB
     Indication: Dermatitis atopic
  3. ESTRADIOL [Concomitant]
     Active Substance: ESTRADIOL
  4. TRIAMCINOLONE ACETONIDE [Concomitant]
     Active Substance: TRIAMCINOLONE ACETONIDE
  5. ALLEGRA ALLERGY [Concomitant]
     Active Substance: FEXOFENADINE HYDROCHLORIDE
  6. FISH OIL [Concomitant]
     Active Substance: FISH OIL
  7. VITAMIN D3 [Concomitant]
     Active Substance: CHOLECALCIFEROL
  8. ATORVASTATIN CALCIUM [Concomitant]
     Active Substance: ATORVASTATIN CALCIUM

REACTIONS (5)
  - Dry skin [Unknown]
  - Skin fissures [Unknown]
  - Skin exfoliation [Unknown]
  - Pruritus [Unknown]
  - Inappropriate schedule of product administration [Unknown]

NARRATIVE: CASE EVENT DATE: 20251001
